FAERS Safety Report 6105157-2 (Version None)
Quarter: 2009Q1

REPORT INFORMATION
  Report Type: 
  Country: None (occurrence: None)
  Receive Date: 20090304
  Receipt Date: 20090304
  Transmission Date: 20090719
  Serious: Yes (Hospitalization)
  Sender: FDA-Public Use
  Company Number: None

PATIENT
  Sex: Female
  Weight: 52.5 kg

DRUGS (3)
  1. CYTARABINE [Suspect]
     Dosage: 11270 MG
  2. MYLOTARG [Suspect]
     Dosage: 4.2 MG
  3. MITOXANTRONE HYDROCHLORIDE [Suspect]
     Dosage: 68 MG

REACTIONS (9)
  - ALPHA HAEMOLYTIC STREPTOCOCCAL INFECTION [None]
  - FEBRILE NEUTROPENIA [None]
  - HEPATIC FUNCTION ABNORMAL [None]
  - HYPOTENSION [None]
  - MENTAL STATUS CHANGES [None]
  - PLEURAL EFFUSION [None]
  - PULMONARY OEDEMA [None]
  - RESPIRATORY DISTRESS [None]
  - SEPSIS [None]
